FAERS Safety Report 6656641-4 (Version None)
Quarter: 2010Q1

REPORT INFORMATION
  Report Type: 
  Country: None (occurrence: None)
  Receive Date: 20100329
  Receipt Date: 20100316
  Transmission Date: 20100710
  Serious: Yes (Hospitalization, Disabling, Other)
  Sender: FDA-Public Use
  Company Number: US-ELI_LILLY_AND_COMPANY-US201001002459

PATIENT
  Age: 43 Year
  Sex: Female

DRUGS (4)
  1. CYMBALTA [Suspect]
     Indication: ARTHRITIS
     Dosage: 30 MG, UNK
     Dates: start: 20070401, end: 20090501
  2. CYMBALTA [Suspect]
     Dosage: 1 D/F, UNK
  3. CYMBALTA [Suspect]
     Dosage: 1 D/F, UNK
  4. ALLEGRA [Concomitant]
     Dosage: UNK, OTHER

REACTIONS (5)
  - DEPRESSION [None]
  - DRUG WITHDRAWAL SYNDROME [None]
  - NERVOUS SYSTEM DISORDER [None]
  - PALPITATIONS [None]
  - SUICIDAL IDEATION [None]
